FAERS Safety Report 8798992 (Version 2)
Quarter: 2012Q4

REPORT INFORMATION
  Report Type: 
  Country: IT (occurrence: IT)
  Receive Date: 20120920
  Receipt Date: 20121003
  Transmission Date: 20130627
  Serious: Yes (Hospitalization, Other)
  Sender: FDA-Public Use
  Company Number: IT-BRISTOL-MYERS SQUIBB COMPANY-16948762

PATIENT
  Age: 59 Year
  Sex: Female

DRUGS (8)
  1. AMIKACIN SULFATE [Suspect]
     Indication: RESPIRATORY TRACT INFECTION
     Dosage: Last dose:01Apr2012
     Route: 030
     Dates: start: 20120323, end: 20120401
  2. EUTIROX [Concomitant]
     Indication: HYPOTHYROIDISM
     Dosage: tabs
  3. BROMAZEPAM [Concomitant]
  4. ESCITALOPRAM OXALATE [Concomitant]
  5. CETIRIZINE [Concomitant]
  6. ALPRAZOLAM [Concomitant]
  7. BISOPROLOL [Concomitant]
  8. DOMPERIDONE [Concomitant]

REACTIONS (2)
  - Renal failure acute [Recovering/Resolving]
  - Urinary tract infection enterococcal [Unknown]
